FAERS Safety Report 13371553 (Version 3)
Quarter: 2017Q2

REPORT INFORMATION
  Report Type: Report from Study
  Country: US (occurrence: US)
  Receive Date: 20170324
  Receipt Date: 20170405
  Transmission Date: 20170830
  Serious: Yes (Other)
  Sender: FDA-Public Use
  Company Number: US-BRISTOL-MYERS SQUIBB COMPANY-BMS-2017-024431

PATIENT
  Age: 45 Year
  Sex: Male

DRUGS (2)
  1. ARIPIPRAZOLE. [Suspect]
     Active Substance: ARIPIPRAZOLE
     Indication: SCHIZOPHRENIA
     Route: 065
  2. BREXPIPRAZOLE [Suspect]
     Active Substance: BREXPIPRAZOLE
     Indication: SCHIZOPHRENIA
     Route: 065

REACTIONS (9)
  - Sedation [Unknown]
  - Muscle rigidity [Unknown]
  - Parkinsonism [Unknown]
  - Suicide attempt [Unknown]
  - Dystonia [Unknown]
  - Akathisia [Unknown]
  - Dyskinesia [Unknown]
  - Weight increased [Unknown]
  - Drooling [Unknown]
